FAERS Safety Report 9111657 (Version 1)
Quarter: 2013Q1

REPORT INFORMATION
  Report Type: Spontaneous
  Country: US (occurrence: US)
  Receive Date: 20130219
  Receipt Date: 20130219
  Transmission Date: 20140127
  Serious: Yes (Other)
  Sender: FDA-Public Use
  Company Number: US-BRISTOL-MYERS SQUIBB COMPANY-16553133

PATIENT
  Age: 44 Year
  Sex: Female

DRUGS (1)
  1. ORENCIA [Suspect]
     Indication: RHEUMATOID ARTHRITIS
     Dosage: 05DEC11,19DEC11,03JAN12,31JAN12,NO OF COURSES: 4
     Route: 042
     Dates: start: 20111205, end: 20120131

REACTIONS (1)
  - Drug hypersensitivity [Recovered/Resolved]
